FAERS Safety Report 5946912-9 (Version None)
Quarter: 2008Q4

REPORT INFORMATION
  Report Type: 
  Country: None (occurrence: None)
  Receive Date: 20081107
  Receipt Date: 20081107
  Transmission Date: 20090506
  Serious: Yes (Death, Life-Threatening, Hospitalization, Disabling, Other)
  Sender: FDA-Public Use
  Company Number: None

PATIENT
  Age: 68 Year
  Sex: Male
  Weight: 62.5964 kg

DRUGS (2)
  1. AVANDIA [Suspect]
     Dosage: GLIPIZIDE XL 2XDAILY EVERY MORN
     Dates: start: 20040121, end: 20050328
  2. LOTREL [Suspect]
     Indication: BLOOD PRESSURE
     Dosage: TRICOR 1 TAB DAILY
     Dates: start: 20040121, end: 20050328

REACTIONS (5)
  - FLUID RETENTION [None]
  - JAUNDICE [None]
  - LIVER INJURY [None]
  - PERITONITIS BACTERIAL [None]
  - RENAL FAILURE [None]
